FAERS Safety Report 23161052 (Version 1)
Quarter: 2023Q4

REPORT INFORMATION
  Report Type: Spontaneous
  Country: US (occurrence: US)
  Receive Date: 20231108
  Receipt Date: 20231108
  Transmission Date: 20240110
  Serious: No
  Sender: FDA-Public Use
  Company Number: US-SA-SAC20231101000847

PATIENT
  Age: 62 Year
  Sex: Female

DRUGS (1)
  1. DUPIXENT [Suspect]
     Active Substance: DUPILUMAB
     Indication: Sinus polyp degeneration
     Dosage: 300 MG, FREQUENCY: OTHER
     Route: 058
     Dates: start: 20220216

REACTIONS (3)
  - Upper-airway cough syndrome [Unknown]
  - Drug ineffective [Unknown]
  - Intentional dose omission [Unknown]
